FAERS Safety Report 25667713 (Version 3)
Quarter: 2025Q3

REPORT INFORMATION
  Report Type: Spontaneous
  Country: UA (occurrence: UA)
  Receive Date: 20250811
  Receipt Date: 20250909
  Transmission Date: 20251021
  Serious: Yes (Other)
  Sender: BRISTOL-MYERS SQUIBB COMPANY
  Company Number: UA-BRISTOL-MYERS SQUIBB COMPANY-2025-102664

PATIENT
  Age: 65 Year
  Sex: Male

DRUGS (1)
  1. SOTYKTU [Suspect]
     Active Substance: DEUCRAVACITINIB
     Indication: Psoriasis
     Dates: start: 202504, end: 20250605

REACTIONS (7)
  - Psoriasis [Unknown]
  - Diabetes mellitus inadequate control [Unknown]
  - Psoriatic arthropathy [Unknown]
  - Inability to afford medication [Unknown]
  - Insurance issue [Unknown]
  - Therapy interrupted [Unknown]
  - Product use issue [Unknown]
